FAERS Safety Report 4746062-3 (Version None)
Quarter: 2005Q3

REPORT INFORMATION
  Report Type: 
  Country: None (occurrence: None)
  Receive Date: 20050816
  Receipt Date: 20050204
  Transmission Date: 20060218
  Serious: Yes (Hospitalization)
  Sender: FDA-Public Use
  Company Number: US-ROCHE-394909

PATIENT
  Age: 43 Year
  Sex: Female
  Weight: 73.8 kg

DRUGS (9)
  1. PEG-INTERFERON ALFA 2A (RO 25-8310) [Suspect]
     Route: 058
     Dates: start: 20041207, end: 20050125
  2. RIBAVIRIN [Suspect]
     Route: 048
     Dates: start: 20041207, end: 20050201
  3. NICOTINE POLACRILEX [Concomitant]
     Indication: SMOKING CESSATION THERAPY
     Dates: start: 20040615
  4. OMEPRAZOLE [Concomitant]
     Dates: start: 20040615
  5. OXYCODONE [Concomitant]
     Dates: start: 20020615
  6. PARACETAMOL [Concomitant]
     Dates: start: 20041207
  7. ASPIRIN/CAFFEINE/PARACETAMOL [Concomitant]
     Dosage: FURTHER THERAPY ON UNKNOWN DATES.
     Dates: start: 20041207
  8. IBUPROFEN [Concomitant]
     Dates: start: 20041207
  9. VALIUM [Concomitant]
     Indication: MUSCLE SPASMS
     Dates: start: 20041207

REACTIONS (9)
  - ASTHENIA [None]
  - DIARRHOEA [None]
  - DRY SKIN [None]
  - MUSCLE SPASMS [None]
  - PANCYTOPENIA [None]
  - SKIN WARM [None]
  - THROMBOCYTOPENIA [None]
  - VOMITING [None]
  - WEIGHT DECREASED [None]
